FAERS Safety Report 12631956 (Version 2)
Quarter: 2016Q3

REPORT INFORMATION
  Report Type: Spontaneous
  Country: US (occurrence: US)
  Receive Date: 20160808
  Receipt Date: 20160808
  Transmission Date: 20161109
  Serious: No
  Sender: FDA-Public Use
  Company Number: US-BEH-2016061512

PATIENT
  Sex: Female
  Weight: 69 kg

DRUGS (19)
  1. ACETAMINOPHEN. [Concomitant]
     Active Substance: ACETAMINOPHEN
  2. MIRENA [Concomitant]
     Active Substance: LEVONORGESTREL
  3. EPIPEN [Concomitant]
     Active Substance: EPINEPHRINE
  4. ADDERALL [Concomitant]
     Active Substance: AMPHETAMINE ASPARTATE\AMPHETAMINE SULFATE\DEXTROAMPHETAMINE SACCHARATE\DEXTROAMPHETAMINE SULFATE
  5. FLORENA [Concomitant]
  6. DIFLUCAN [Concomitant]
     Active Substance: FLUCONAZOLE
  7. ELIDEL [Concomitant]
     Active Substance: PIMECROLIMUS
  8. MAGNESIUM [Concomitant]
     Active Substance: MAGNESIUM
  9. HYDROXYZINE [Concomitant]
     Active Substance: HYDROXYZINE\HYDROXYZINE HYDROCHLORIDE
  10. SINUS WASH NETI POT KIT [Concomitant]
  11. HIZENTRA [Suspect]
     Active Substance: HUMAN IMMUNOGLOBULIN G
     Indication: IMMUNODEFICIENCY COMMON VARIABLE
     Route: 058
  12. IMITREX [Concomitant]
     Active Substance: SUMATRIPTAN SUCCINATE
  13. VALTREX [Concomitant]
     Active Substance: VALACYCLOVIR HYDROCHLORIDE
  14. ALBUTEROL. [Concomitant]
     Active Substance: ALBUTEROL
  15. MULTIPLE VITAMIN [Concomitant]
     Active Substance: VITAMINS
  16. DIPHENHYDRAMINE. [Concomitant]
     Active Substance: DIPHENHYDRAMINE
  17. MUPIROCIN. [Concomitant]
     Active Substance: MUPIROCIN
  18. RESTORIL [Concomitant]
     Active Substance: TEMAZEPAM
  19. DOXYCYCLINE. [Concomitant]
     Active Substance: DOXYCYCLINE

REACTIONS (1)
  - Sinusitis [Unknown]
